FAERS Safety Report 8618023-5 (Version None)
Quarter: 2012Q3

REPORT INFORMATION
  Report Type: 
  Country: None (occurrence: None)
  Receive Date: 20120824
  Receipt Date: 20120202
  Transmission Date: 20120928
  Serious: No
  Sender: FDA-Public Use
  Company Number: US-ASTRAZENECA-2012SE07150

PATIENT
  Age: 88 Year
  Sex: Male
  Weight: 65.8 kg

DRUGS (3)
  1. SYMBICORT [Suspect]
     Indication: ASTHMA
     Dosage: 160/4.5 MCG, 2 PUFFS TWICE DAILY
     Route: 055
  2. SYMBICORT [Suspect]
     Indication: BRONCHITIS
     Dosage: 160/4.5 MCG, 2 PUFFS TWICE DAILY
     Route: 055
  3. PROAIR HFA [Concomitant]
     Dosage: AS NEEDED
     Route: 055

REACTIONS (2)
  - INCREASED UPPER AIRWAY SECRETION [None]
  - DYSPHONIA [None]
